FAERS Safety Report 6025115-6 (Version None)
Quarter: 2008Q4

REPORT INFORMATION
  Report Type: 
  Country: None (occurrence: None)
  Receive Date: 20081231
  Receipt Date: 20081223
  Transmission Date: 20090506
  Serious: Yes (Hospitalization)
  Sender: FDA-Public Use
  Company Number: DE-PFIZER INC-2008095164

PATIENT
  Sex: Female
  Weight: 60 kg

DRUGS (2)
  1. LYRICA [Suspect]
     Indication: NEURALGIA
     Dosage: UNK
     Route: 048
     Dates: start: 20081009, end: 20081017
  2. NALOXONE/OXYCODONE [Interacting]
     Indication: BACK PAIN
     Route: 048
     Dates: start: 20080110

REACTIONS (7)
  - ASTHENIA [None]
  - DEHYDRATION [None]
  - DEPRESSION [None]
  - DIZZINESS [None]
  - DRUG INTERACTION [None]
  - GENERAL PHYSICAL HEALTH DETERIORATION [None]
  - SYNCOPE [None]
